FAERS Safety Report 9866961 (Version 1)
Quarter: 2014Q1

REPORT INFORMATION
  Report Type: Spontaneous
  Country: US (occurrence: None)
  Receive Date: 20140203
  Receipt Date: 20140203
  Transmission Date: 20141002
  Serious: Yes (Life-Threatening, Hospitalization, Disabling, Other)
  Sender: FDA-Public Use
  Company Number: None

PATIENT
  Age: 54 Year
  Sex: Male
  Weight: 90.72 kg

DRUGS (1)
  1. MEGACE [Suspect]
     Indication: DECREASED APPETITE
     Dosage: TAKEN BY MOUTH
     Dates: start: 20111012, end: 20111129

REACTIONS (1)
  - Pulmonary embolism [None]
